FAERS Safety Report 21023320 (Version 1)
Quarter: 2022Q2

REPORT INFORMATION
  Report Type: Spontaneous
  Country: US (occurrence: None)
  Receive Date: 20220629
  Receipt Date: 20220629
  Transmission Date: 20220721
  Serious: Yes (Life-Threatening, Hospitalization)
  Sender: FDA-Public Use
  Company Number: None

PATIENT
  Age: 66 Year
  Sex: Male

DRUGS (1)
  1. DORZOLAMIDE HYDROCHLORIDE AND TIMOLOL MALEATE OPHTHALMIC SOLUTION [Suspect]
     Active Substance: DORZOLAMIDE HYDROCHLORIDE\TIMOLOL MALEATE
     Indication: Glaucoma
     Dosage: FREQUENCY : TWICE A DAY; IN EYE?
     Route: 047
     Dates: start: 20200622, end: 20200624

REACTIONS (10)
  - Angioedema [None]
  - Erythema multiforme [None]
  - Product formulation issue [None]
  - Vision blurred [None]
  - Drug hypersensitivity [None]
  - Periorbital cellulitis [None]
  - Conjunctivitis [None]
  - Eye swelling [None]
  - Ocular hyperaemia [None]
  - Eye discharge [None]

NARRATIVE: CASE EVENT DATE: 20200723
